FAERS Safety Report 6606862-1 (Version None)
Quarter: 2010Q1

REPORT INFORMATION
  Report Type: 
  Country: None (occurrence: None)
  Receive Date: 20100226
  Receipt Date: 20090218
  Transmission Date: 20100710
  Serious: No
  Sender: FDA-Public Use
  Company Number: US-ALLERGAN-0902115US

PATIENT
  Sex: Female

DRUGS (2)
  1. BOTOX COSMETIC [Suspect]
     Indication: SKIN WRINKLING
     Dosage: 25 UNITS, SINGLE
     Route: 030
     Dates: start: 20090210, end: 20090210
  2. TESTOSTERONE [Concomitant]

REACTIONS (3)
  - ERYTHEMA [None]
  - HYPOAESTHESIA FACIAL [None]
  - SWELLING FACE [None]
